FAERS Safety Report 6647436-6 (Version None)
Quarter: 2010Q1

REPORT INFORMATION
  Report Type: 
  Country: None (occurrence: None)
  Receive Date: 20100323
  Receipt Date: 20100317
  Transmission Date: 20100710
  Serious: Yes (Life-Threatening)
  Sender: FDA-Public Use
  Company Number: JP-ROCHE-692102

PATIENT
  Sex: Male

DRUGS (3)
  1. XELODA [Suspect]
     Indication: COLON CANCER RECURRENT
     Route: 048
     Dates: start: 20100202, end: 20100223
  2. AVASTIN [Suspect]
     Indication: COLON CANCER RECURRENT
     Route: 042
  3. ELPLAT [Concomitant]
     Route: 042

REACTIONS (1)
  - RENAL FAILURE ACUTE [None]
